FAERS Safety Report 10809143 (Version 1)
Quarter: 2015Q1

REPORT INFORMATION
  Report Type: Report from Study
  Country: US (occurrence: US)
  Receive Date: 20150217
  Receipt Date: 20150217
  Transmission Date: 20150721
  Serious: No
  Sender: FDA-Public Use
  Company Number: US-ABBVIE-14K-163-1208587-00

PATIENT
  Sex: Female

DRUGS (2)
  1. HUMIRA [Suspect]
     Active Substance: ADALIMUMAB
     Indication: COLITIS ULCERATIVE
     Route: 058
     Dates: start: 20131205
  2. PREDNISONE. [Concomitant]
     Active Substance: PREDNISONE
     Indication: PRODUCT USED FOR UNKNOWN INDICATION
     Dosage: TAPPERED OFF ABOUT 5-6 WEEKS AGO

REACTIONS (7)
  - Headache [Unknown]
  - Fatigue [Unknown]
  - Insomnia [Unknown]
  - Colitis ulcerative [Unknown]
  - Gastrointestinal disorder [Recovering/Resolving]
  - Adrenal insufficiency [Unknown]
  - Restless legs syndrome [Unknown]
